FAERS Safety Report 24961325 (Version 1)
Quarter: 2025Q1

REPORT INFORMATION
  Report Type: Spontaneous
  Country: US (occurrence: US)
  Receive Date: 20250212
  Receipt Date: 20250212
  Transmission Date: 20250409
  Serious: No
  Sender: LUNDBECK
  Company Number: US-LUNDBECK-DKLU4010007

PATIENT

DRUGS (1)
  1. VYEPTI [Suspect]
     Active Substance: EPTINEZUMAB-JJMR
     Indication: Product used for unknown indication
     Route: 041
     Dates: start: 20250127

REACTIONS (5)
  - Pain [Unknown]
  - Fatigue [Unknown]
  - Feeling abnormal [Unknown]
  - Nausea [Unknown]
  - Brain fog [Unknown]

NARRATIVE: CASE EVENT DATE: 20250128
